FAERS Safety Report 5720334-8 (Version None)
Quarter: 2008Q2

REPORT INFORMATION
  Report Type: 
  Country: None (occurrence: None)
  Receive Date: 20080428
  Receipt Date: 20080417
  Transmission Date: 20081010
  Serious: Yes (Hospitalization)
  Sender: FDA-Public Use
  Company Number: US-PFIZER INC-2008033691

PATIENT
  Sex: Female
  Weight: 62 kg

DRUGS (10)
  1. SU-011,248 [Suspect]
     Indication: BREAST CANCER
     Route: 048
     Dates: start: 20071119, end: 20080305
  2. SU-011,248 [Suspect]
     Route: 048
     Dates: start: 20080403, end: 20080413
  3. LORAZEPAM [Concomitant]
     Route: 048
  4. KYTRIL [Concomitant]
     Route: 048
  5. WARFARIN SODIUM [Concomitant]
     Route: 048
  6. ZANTAC [Concomitant]
     Route: 048
  7. PROMETHAZINE [Concomitant]
     Route: 048
  8. ZOFRAN [Concomitant]
     Route: 048
  9. ZOMETA [Concomitant]
     Route: 042
  10. SENNA [Concomitant]
     Dosage: FREQ:DAILY

REACTIONS (1)
  - CHOLECYSTITIS [None]
